FAERS Safety Report 10564678 (Version 3)
Quarter: 2014Q4

REPORT INFORMATION
  Report Type: Spontaneous
  Country: HR (occurrence: HR)
  Receive Date: 20141104
  Receipt Date: 20141128
  Transmission Date: 20150529
  Serious: Yes (Hospitalization, Other)
  Sender: FDA-Public Use
  Company Number: HR-ROCHE-1484846

PATIENT
  Age: 55 Year
  Sex: Female

DRUGS (8)
  1. CONTROLOC [Concomitant]
     Active Substance: PANTOPRAZOLE SODIUM
     Route: 048
  2. PRAXITEN [Concomitant]
     Active Substance: OXAZEPAM
     Route: 048
  3. URSOFALK [Concomitant]
     Active Substance: URSODIOL
     Route: 048
  4. FURSEMID [Concomitant]
     Active Substance: FUROSEMIDE
     Route: 048
  5. CONCOR COR [Concomitant]
     Active Substance: BISOPROLOL FUMARATE
     Route: 048
  6. PORTALAC [Concomitant]
     Active Substance: LACTULOSE
     Route: 048
  7. CELLCEPT [Suspect]
     Active Substance: MYCOPHENOLATE MOFETIL\MYCOPHENOLATE MOFETIL HYDROCHLORIDE
     Indication: IMMUNOSUPPRESSION
     Route: 048
     Dates: start: 20120705
  8. SANDIMMUN NEORAL [Suspect]
     Active Substance: CYCLOSPORINE
     Indication: IMMUNOSUPPRESSION
     Route: 048
     Dates: start: 20120705

REACTIONS (2)
  - Diabetes mellitus [Not Recovered/Not Resolved]
  - Transplant rejection [Recovered/Resolved with Sequelae]

NARRATIVE: CASE EVENT DATE: 20140109
